FAERS Safety Report 10929942 (Version 2)
Quarter: 2015Q3

REPORT INFORMATION
  Report Type: Spontaneous
  Country: CA (occurrence: CA)
  Receive Date: 20150319
  Receipt Date: 20150706
  Transmission Date: 20151125
  Serious: Yes (Other)
  Sender: FDA-Public Use
  Company Number: CA-SA-2015SA033409

PATIENT
  Sex: Female

DRUGS (2)
  1. LANTUS [Suspect]
     Active Substance: INSULIN GLARGINE
     Dosage: DOSE: 120 UNINTS EACH AM AND 140 UNITS EACH PM
     Route: 065
  2. INSULIN HUMAN [Suspect]
     Active Substance: INSULIN HUMAN
     Route: 065

REACTIONS (8)
  - Drug administration error [Unknown]
  - Dyslipidaemia [Unknown]
  - Injection site infection [Unknown]
  - Pancreatitis [Unknown]
  - Injection site atrophy [Unknown]
  - Hypertension [Unknown]
  - Chronic kidney disease [Unknown]
  - Injection site pain [Unknown]
